FAERS Safety Report 17557761 (Version 1)
Quarter: 2020Q1

REPORT INFORMATION
  Report Type: Spontaneous
  Country: AU (occurrence: AU)
  Receive Date: 20200318
  Receipt Date: 20200318
  Transmission Date: 20200409
  Serious: Yes (Hospitalization, Other)
  Sender: FDA-Public Use
  Company Number: AU-MYLANLABS-2020M1028928

PATIENT
  Age: 57 Year
  Sex: Male

DRUGS (12)
  1. FLUOROURACIL. [Suspect]
     Active Substance: FLUOROURACIL
     Dosage: RESTARTED DUE TO PROGRESSION; EVERY TWO WEEKS
     Route: 042
     Dates: start: 201903
  2. CAPECITABINE. [Suspect]
     Active Substance: CAPECITABINE
     Indication: COLORECTAL CANCER METASTATIC
     Dosage: 4 CYCLES
     Route: 048
     Dates: end: 201903
  3. FLUOROURACIL. [Suspect]
     Active Substance: FLUOROURACIL
     Dosage: CONTINUOUS INFUSION OVER 46 HOURS; RECEIVED 12 CYCLES GIVEN EVERY TWO WEEKS
     Route: 042
     Dates: start: 201805
  4. BEVACIZUMAB. [Suspect]
     Active Substance: BEVACIZUMAB
     Dosage: 3-WEEKLY BEVACIZUMAB; 4 CYCLES
     Route: 065
     Dates: end: 201903
  5. ENOXAPARIN [Concomitant]
     Active Substance: ENOXAPARIN
     Indication: PULMONARY EMBOLISM
     Route: 065
  6. FOLINIC ACID [Suspect]
     Active Substance: LEUCOVORIN
     Indication: COLORECTAL CANCER METASTATIC
     Dosage: RECEIVED 12 CYCLES GIVEN EVERY TWO WEEKS
     Route: 065
     Dates: start: 201805
  7. OXALIPLATIN. [Suspect]
     Active Substance: OXALIPLATIN
     Indication: COLORECTAL CANCER METASTATIC
     Dosage: RECEIVED 12 CYCLES GIVEN EVERY TWO WEEKS
     Route: 065
     Dates: start: 201805
  8. CETUXIMAB. [Suspect]
     Active Substance: CETUXIMAB
     Indication: COLORECTAL CANCER METASTATIC
     Route: 065
     Dates: start: 201903
  9. BEVACIZUMAB. [Suspect]
     Active Substance: BEVACIZUMAB
     Indication: COLORECTAL CANCER METASTATIC
     Dosage: RECEIVED 12 CYCLES GIVEN EVERY TWO WEEKS
     Route: 065
     Dates: start: 201805
  10. FOLINIC ACID [Suspect]
     Active Substance: LEUCOVORIN
     Dosage: RESTARTED DUE TO PROGRESSION; EVERY TWO WEEKS
     Route: 065
     Dates: start: 201903
  11. FLUOROURACIL. [Suspect]
     Active Substance: FLUOROURACIL
     Indication: COLORECTAL CANCER METASTATIC
     Dosage: RECEIVED 12 CYCLES GIVEN EVERY TWO WEEKS
     Route: 042
     Dates: start: 201805
  12. IRINOTECAN [Suspect]
     Active Substance: IRINOTECAN
     Indication: COLORECTAL CANCER METASTATIC
     Dosage: DUE TO PROGRESSION; EVERY TWO WEEKS
     Route: 065
     Dates: start: 201903

REACTIONS (4)
  - Optic neuritis [Recovering/Resolving]
  - Palmar-plantar erythrodysaesthesia syndrome [Unknown]
  - Neuropathy peripheral [Not Recovered/Not Resolved]
  - Dermatitis acneiform [Unknown]

NARRATIVE: CASE EVENT DATE: 201906
